FAERS Safety Report 5870179-3 (Version None)
Quarter: 2008Q3

REPORT INFORMATION
  Report Type: 
  Country: None (occurrence: None)
  Receive Date: 20080904
  Receipt Date: 20080827
  Transmission Date: 20090109
  Serious: Yes (Hospitalization)
  Sender: FDA-Public Use
  Company Number: FR-BRISTOL-MYERS SQUIBB COMPANY-13351473

PATIENT
  Age: 75 Year
  Sex: Female

DRUGS (4)
  1. IRBESARTAN [Suspect]
     Indication: CARDIAC FAILURE
     Route: 048
     Dates: start: 20040930, end: 20060305
  2. FUROSEMIDE [Concomitant]
     Dates: start: 20040101
  3. INDAPAMIDE [Concomitant]
     Dates: start: 20040101
  4. PRAVASTATIN [Concomitant]

REACTIONS (2)
  - PYELONEPHRITIS [None]
  - RENAL FAILURE [None]
